FAERS Safety Report 8781859 (Version 2)
Quarter: 2012Q4

REPORT INFORMATION
  Report Type: 
  Country: FR (occurrence: FR)
  Receive Date: 20120914
  Receipt Date: 20120917
  Transmission Date: 20130627
  Serious: Yes (Disabling)
  Sender: FDA-Public Use
  Company Number: FR-SANOFI-AVENTIS-2012SA063416

PATIENT
  Age: 74 Year
  Sex: Female

DRUGS (8)
  1. KARDEGIC [Suspect]
     Indication: DRUG USE FOR UNKNOWN INDICATION
     Route: 048
     Dates: start: 200708
  2. LASILIX [Suspect]
     Indication: DYSPNOEA ON EFFORT
     Route: 048
     Dates: start: 201205, end: 201207
  3. CANDESARTAN [Suspect]
     Indication: HYPERTENSION ARTERIAL
     Route: 048
     Dates: start: 201107
  4. ISOPTINE [Suspect]
     Indication: HYPERTENSION ARTERIAL
     Route: 048
     Dates: start: 200708
  5. ALPRAZOLAM [Suspect]
     Indication: DRUG USE FOR UNKNOWN INDICATION
     Route: 048
     Dates: start: 200708
  6. EZETROL [Suspect]
     Indication: DYSLIPIDEMIA
     Route: 048
     Dates: start: 2012
  7. PARACETAMOL [Suspect]
     Indication: DRUG USE FOR UNKNOWN INDICATION
     Route: 048
  8. COLECALCIFEROL [Concomitant]
     Indication: DRUG USE FOR UNKNOWN INDICATION
     Dosage: 1 ampoule every 3 months.
     Route: 065

REACTIONS (1)
  - Pulmonary fibrosis [Not Recovered/Not Resolved]
